FAERS Safety Report 4272764-1 (Version None)
Quarter: 2004Q1

REPORT INFORMATION
  Report Type: 
  Country: None (occurrence: None)
  Receive Date: 20040114
  Receipt Date: 20040105
  Transmission Date: 20041129
  Serious: Yes (Death)
  Sender: FDA-Public Use
  Company Number: 163-20785-04010047 (0)

PATIENT
  Age: 52 Year
  Sex: Female

DRUGS (1)
  1. THALOMID [Suspect]
     Indication: BRAIN NEOPLASM MALIGNANT
     Dosage: 200 MG, QD, ORAL
     Route: 048
     Dates: start: 20031124

REACTIONS (1)
  - PNEUMONIA [None]
